FAERS Safety Report 13449366 (Version 1)
Quarter: 2017Q2

REPORT INFORMATION
  Report Type: Spontaneous
  Country: US (occurrence: US)
  Receive Date: 20170417
  Receipt Date: 20170417
  Transmission Date: 20170830
  Serious: No
  Sender: FDA-Public Use
  Company Number: US-PFIZER INC-2017160945

PATIENT
  Age: 62 Year
  Sex: Female
  Weight: 59 kg

DRUGS (8)
  1. XELJANZ XR [Suspect]
     Active Substance: TOFACITINIB CITRATE
     Indication: RHEUMATOID ARTHRITIS
     Dosage: 11 MG, 1X/DAY (AT NOON)
     Route: 048
     Dates: start: 2017
  2. SYNTHROID [Concomitant]
     Active Substance: LEVOTHYROXINE SODIUM
     Indication: THYROID DISORDER
     Dosage: 25 UG, 1X/DAY
  3. SINGULAIR [Concomitant]
     Active Substance: MONTELUKAST SODIUM
     Dosage: 10 MG, 1X/DAY (IN THE MORNING)
  4. FOLIC ACID. [Concomitant]
     Active Substance: FOLIC ACID
     Indication: RHEUMATOID ARTHRITIS
     Dosage: 1 MG, 1X/DAY (IN THE EVENING)
     Dates: start: 201612
  5. METHOTREXATE. [Concomitant]
     Active Substance: METHOTREXATE
     Indication: RHEUMATOID ARTHRITIS
     Dosage: 10 MG, WEEKLY (ON WEDNESDAY NIGHT)
     Dates: start: 201612
  6. HYDROXYCHLOROQUINE [Concomitant]
     Active Substance: HYDROXYCHLOROQUINE
     Indication: RHEUMATOID ARTHRITIS
     Dosage: 200 MG, 1X/DAY (AT LUNCH)
     Dates: start: 201612
  7. TRAMADOL. [Concomitant]
     Active Substance: TRAMADOL
     Indication: PAIN
     Dosage: 50 MG, AS NEEDED
     Dates: start: 201612
  8. LIOTHYRONINE [Concomitant]
     Active Substance: LIOTHYRONINE
     Indication: THYROID DISORDER
     Dosage: 10 UG, DAILY

REACTIONS (5)
  - Dysuria [Recovered/Resolved]
  - Back pain [Recovered/Resolved]
  - Blood urine present [Recovered/Resolved]
  - Pain [Not Recovered/Not Resolved]
  - Urinary tract disorder [Unknown]

NARRATIVE: CASE EVENT DATE: 20170403
